FAERS Safety Report 7011026-6 (Version None)
Quarter: 2010Q3

REPORT INFORMATION
  Report Type: 
  Country: None (occurrence: None)
  Receive Date: 20100923
  Receipt Date: 20081020
  Transmission Date: 20110219
  Serious: No
  Sender: FDA-Public Use
  Company Number: US-WYE-H06490408

PATIENT
  Sex: Female

DRUGS (1)
  1. PREMARIN [Suspect]
     Indication: VULVOVAGINAL DRYNESS
     Dosage: SMALL AMOUNT DAILY TO THE OUTSIDE OF HER VAGINA VIA HER PINKY FINGER
     Route: 061
     Dates: start: 20081017

REACTIONS (2)
  - INSOMNIA [None]
  - NERVOUSNESS [None]
